FAERS Safety Report 6596807-5 (Version None)
Quarter: 2010Q1

REPORT INFORMATION
  Report Type: 
  Country: None (occurrence: None)
  Receive Date: 20100219
  Receipt Date: 20100219
  Transmission Date: 20100710
  Serious: No
  Sender: FDA-Public Use
  Company Number: None

PATIENT
  Sex: Male
  Weight: 102.0593 kg

DRUGS (1)
  1. DOXYCYCLINE MONOHYDRATE [Suspect]
     Indication: ROSACEA
     Dosage: 50MG 1 TAB BID ORAL
     Route: 048
     Dates: start: 20090930, end: 20091012

REACTIONS (1)
  - DIARRHOEA [None]
